FAERS Safety Report 14298583 (Version 1)
Quarter: 2017Q4

REPORT INFORMATION
  Report Type: Spontaneous
  Country: US (occurrence: US)
  Receive Date: 20171218
  Receipt Date: 20171218
  Transmission Date: 20180321
  Serious: No
  Sender: FDA-Public Use
  Company Number: US-PFIZER INC-2017399321

PATIENT
  Age: 48 Year
  Sex: Female
  Weight: 61.68 kg

DRUGS (2)
  1. SOMAVERT [Suspect]
     Active Substance: PEGVISOMANT
     Indication: ACROMEGALY
     Dosage: 30 MG, (3 DAYS PER WEEK)
     Dates: start: 201607
  2. SOMAVERT [Suspect]
     Active Substance: PEGVISOMANT
     Dosage: 30 MG, (THREE TIMES A WEEK)
     Dates: start: 2016, end: 201710

REACTIONS (3)
  - Drug dose omission [Unknown]
  - Lipohypertrophy [Unknown]
  - Product use issue [Unknown]

NARRATIVE: CASE EVENT DATE: 201710
